FAERS Safety Report 6708251-8 (Version None)
Quarter: 2010Q2

REPORT INFORMATION
  Report Type: 
  Country: None (occurrence: None)
  Receive Date: 20100503
  Receipt Date: 20090924
  Transmission Date: 20101027
  Serious: No
  Sender: FDA-Public Use
  Company Number: US-ASTRAZENECA-2009SE15232

PATIENT
  Age: 52 Year
  Sex: Female
  Weight: 60.8 kg

DRUGS (1)
  1. NEXIUM [Suspect]
     Dosage: DAILY
     Route: 048
     Dates: start: 20060101

REACTIONS (5)
  - EAR DISCOMFORT [None]
  - EYE PRURITUS [None]
  - HEADACHE [None]
  - HYPERSENSITIVITY [None]
  - PRURITUS [None]
